FAERS Safety Report 4724729-0 (Version None)
Quarter: 2005Q3

REPORT INFORMATION
  Report Type: 
  Country: None (occurrence: None)
  Receive Date: 20050722
  Receipt Date: 20050711
  Transmission Date: 20060218
  Serious: Yes (Hospitalization)
  Sender: FDA-Public Use
  Company Number: 2005BI011584

PATIENT
  Age: 50 Year
  Sex: Female

DRUGS (8)
  1. AVONEX [Suspect]
     Indication: MULTIPLE SCLEROSIS
     Dosage: 30 UG;LIQ  QW IM
     Route: 030
     Dates: start: 20031230
  2. ACTONEL [Concomitant]
  3. VIOXX [Concomitant]
  4. CYCLOBENZAPRINE HCL [Concomitant]
  5. ADVIL [Concomitant]
  6. NEURONTIN [Concomitant]
  7. VICODIN [Concomitant]
  8. VICODIN ES [Concomitant]

REACTIONS (6)
  - INFLUENZA LIKE ILLNESS [None]
  - INTERVERTEBRAL DISC PROTRUSION [None]
  - MIDDLE INSOMNIA [None]
  - MUSCULAR WEAKNESS [None]
  - SENSORY DISTURBANCE [None]
  - SPINAL OSTEOARTHRITIS [None]
